FAERS Safety Report 12328777 (Version 1)
Quarter: 2016Q2

REPORT INFORMATION
  Report Type: Spontaneous
  Country: US (occurrence: US)
  Receive Date: 20160503
  Receipt Date: 20160503
  Transmission Date: 20160815
  Serious: Yes (Other)
  Sender: FDA-Public Use
  Company Number: US-BEH-2015050701

PATIENT
  Sex: Female

DRUGS (1)
  1. HIZENTRA [Suspect]
     Active Substance: HUMAN IMMUNOGLOBULIN G
     Indication: IMMUNODEFICIENCY COMMON VARIABLE
     Dosage: STARTED SEP-2014
     Route: 058

REACTIONS (6)
  - Anaphylactic reaction [Unknown]
  - Migraine [Unknown]
  - Fatigue [Unknown]
  - Dizziness [Unknown]
  - Rash generalised [Unknown]
  - Fall [Unknown]
